FAERS Safety Report 11872350 (Version 2)
Quarter: 2016Q1

REPORT INFORMATION
  Report Type: Report from Study
  Country: JP (occurrence: JP)
  Receive Date: 20151228
  Receipt Date: 20160217
  Transmission Date: 20160526
  Serious: Yes (Other)
  Sender: FDA-Public Use
  Company Number: JP-OTSUKA-2015_012489

PATIENT
  Age: 60 Year
  Sex: Female
  Weight: 50 kg

DRUGS (12)
  1. TOLVAPTAN [Suspect]
     Active Substance: TOLVAPTAN
     Dosage: 15 MG, (IN THE EVENING)
     Route: 048
     Dates: start: 20150525, end: 20150913
  2. FEBURIC [Suspect]
     Active Substance: FEBUXOSTAT
     Dosage: 20 MG, DAILY DOSE
     Route: 048
     Dates: start: 20150515, end: 20151116
  3. MICARDIS [Concomitant]
     Active Substance: TELMISARTAN
     Indication: PRODUCT USED FOR UNKNOWN INDICATION
     Dosage: 40 MG, DAILY DOSE
     Route: 048
     Dates: start: 20150406
  4. SAMSCA [Suspect]
     Active Substance: TOLVAPTAN
     Indication: CONGENITAL CYSTIC KIDNEY DISEASE
     Dosage: 7.5 MG, QD (IN THE EVENING)
     Route: 048
     Dates: start: 20150512, end: 20150512
  5. TOLVAPTAN [Suspect]
     Active Substance: TOLVAPTAN
     Dosage: 30 MG, (IN THE MORNING)
     Route: 048
     Dates: start: 20150525, end: 20150913
  6. TEPRENONE [Concomitant]
     Active Substance: TEPRENONE
     Indication: PRODUCT USED FOR UNKNOWN INDICATION
     Dosage: 150 MG, DAILY DOSE
     Route: 048
     Dates: start: 20150406
  7. SAMSCA [Suspect]
     Active Substance: TOLVAPTAN
     Dosage: 7.5 MG, BID (IN THE MORNING AND EVENING)
     Route: 048
     Dates: start: 20150513, end: 20150524
  8. SAMSCA [Suspect]
     Active Substance: TOLVAPTAN
     Dosage: 7.5 MG, BID (IN THE MORNING AND EVENING)
     Route: 048
     Dates: start: 20150914, end: 20151005
  9. FEBURIC [Suspect]
     Active Substance: FEBUXOSTAT
     Indication: PRODUCT USED FOR UNKNOWN INDICATION
     Dosage: 20 MG, DAILY DOSE
     Route: 048
     Dates: start: 20150406, end: 20150512
  10. FAMOTIDINE. [Concomitant]
     Active Substance: FAMOTIDINE
     Indication: PRODUCT USED FOR UNKNOWN INDICATION
     Dosage: 10 MG, DAILY DOSE
     Route: 048
     Dates: start: 20150406
  11. TOLVAPTAN [Suspect]
     Active Substance: TOLVAPTAN
     Indication: CONGENITAL CYSTIC KIDNEY DISEASE
     Dosage: 15 MG, (IN THE MORNING)
     Route: 048
     Dates: start: 20150513, end: 20150524
  12. KREMEZIN [Concomitant]
     Active Substance: ACTIVATED CHARCOAL
     Indication: CONGENITAL CYSTIC KIDNEY DISEASE
     Dosage: 6 G, DAILY DOSE
     Route: 048
     Dates: start: 20150406

REACTIONS (4)
  - Liver disorder [Recovered/Resolved]
  - Rash generalised [Recovering/Resolving]
  - Hypernatraemia [Recovered/Resolved]
  - Cystitis [Recovered/Resolved]

NARRATIVE: CASE EVENT DATE: 20150704
